FAERS Safety Report 4413088-9 (Version None)
Quarter: 2004Q3

REPORT INFORMATION
  Report Type: 
  Country: None (occurrence: None)
  Receive Date: 20040802
  Receipt Date: 20040728
  Transmission Date: 20050211
  Serious: Yes (Hospitalization)
  Sender: FDA-Public Use
  Company Number: FR-ROCHE-375892

PATIENT
  Age: 68 Year
  Sex: Male

DRUGS (6)
  1. RIVOTRIL [Suspect]
     Indication: DRUG USE FOR UNKNOWN INDICATION
     Route: 048
     Dates: start: 20040605, end: 20040605
  2. MONO-TILDIEM LP [Suspect]
     Indication: DRUG USE FOR UNKNOWN INDICATION
     Route: 048
  3. ACYCLOVIR [Suspect]
     Indication: HERPES ZOSTER
     Route: 042
     Dates: start: 20040603, end: 20040605
  4. DIFFU K [Suspect]
     Indication: DRUG USE FOR UNKNOWN INDICATION
     Route: 048
     Dates: start: 20040604, end: 20040604
  5. DIFFU K [Suspect]
     Route: 048
     Dates: start: 20040605, end: 20040605
  6. DIFFU K [Suspect]
     Route: 048
     Dates: start: 20040606

REACTIONS (1)
  - RENAL FAILURE ACUTE [None]
